FAERS Safety Report 4588335-3 (Version None)
Quarter: 2005Q1

REPORT INFORMATION
  Report Type: 
  Country: None (occurrence: None)
  Receive Date: 20050215
  Receipt Date: 20050215
  Transmission Date: 20050727
  Serious: No
  Sender: FDA-Public Use
  Company Number: None

PATIENT
  Age: 73 Year
  Sex: Female
  Weight: 96.1626 kg

DRUGS (2)
  1. PROCARDIA XL [Suspect]
     Indication: CORONARY ARTERY DISEASE
     Dosage: QD
  2. PROCARDIA XL [Suspect]
     Indication: MALIGNANT HYPERTENSION
     Dosage: QD

REACTIONS (7)
  - ANGINA UNSTABLE [None]
  - DRUG TOLERANCE DECREASED [None]
  - HEADACHE [None]
  - MALIGNANT HYPERTENSION [None]
  - NAUSEA [None]
  - PHARMACEUTICAL PRODUCT COMPLAINT [None]
  - THERAPEUTIC PRODUCT INEFFECTIVE [None]
